FAERS Safety Report 25509557 (Version 3)
Quarter: 2025Q4

REPORT INFORMATION
  Report Type: Spontaneous
  Country: CA (occurrence: CA)
  Receive Date: 20250703
  Receipt Date: 20251231
  Transmission Date: 20260117
  Serious: Yes (Death, Hospitalization, Disabling, Congenital Anomaly)
  Sender: ROCHE
  Company Number: CA-HALEON-2249280

PATIENT
  Age: 40 Year
  Sex: Female
  Weight: 96 kg

DRUGS (45)
  1. OMALIZUMAB [Suspect]
     Active Substance: OMALIZUMAB
     Indication: Chronic spontaneous urticaria
     Dosage: UNK
  2. OMALIZUMAB [Suspect]
     Active Substance: OMALIZUMAB
     Dosage: 300 MG
     Route: 058
  3. OMALIZUMAB [Suspect]
     Active Substance: OMALIZUMAB
     Dosage: UNK
     Route: 058
  4. OMALIZUMAB [Suspect]
     Active Substance: OMALIZUMAB
     Dosage: 1200 MG
     Route: 058
  5. OMALIZUMAB [Suspect]
     Active Substance: OMALIZUMAB
     Dosage: 300 MG
     Route: 058
  6. OMALIZUMAB [Suspect]
     Active Substance: OMALIZUMAB
     Dosage: 300 MG
     Route: 058
  7. OMALIZUMAB [Suspect]
     Active Substance: OMALIZUMAB
     Dosage: UNK
     Route: 058
  8. OMALIZUMAB [Suspect]
     Active Substance: OMALIZUMAB
     Dosage: 300 MG
     Route: 058
  9. OMALIZUMAB [Suspect]
     Active Substance: OMALIZUMAB
     Dosage: UNK
     Route: 058
  10. OMALIZUMAB [Suspect]
     Active Substance: OMALIZUMAB
     Dosage: 300 MG
     Route: 058
  11. OMALIZUMAB [Suspect]
     Active Substance: OMALIZUMAB
     Dosage: 300 MG
     Route: 058
  12. OMALIZUMAB [Suspect]
     Active Substance: OMALIZUMAB
     Dosage: UNK
     Route: 058
  13. OMALIZUMAB [Suspect]
     Active Substance: OMALIZUMAB
     Dosage: UNK
     Route: 058
  14. OMALIZUMAB [Suspect]
     Active Substance: OMALIZUMAB
     Dosage: UNK, THERAPY DURATION: 1.0 DAYS
     Route: 058
  15. OMALIZUMAB [Suspect]
     Active Substance: OMALIZUMAB
     Route: 058
  16. OMALIZUMAB [Suspect]
     Active Substance: OMALIZUMAB
     Dosage: 300 MG
     Route: 058
  17. RITUXIMAB [Suspect]
     Active Substance: RITUXIMAB
     Indication: Rheumatoid arthritis
     Dosage: 2000 MG, QD
  18. RITUXIMAB [Suspect]
     Active Substance: RITUXIMAB
     Dosage: 365 MG, QD
  19. RITUXIMAB [Suspect]
     Active Substance: RITUXIMAB
     Dosage: UNK
  20. RITUXIMAB [Suspect]
     Active Substance: RITUXIMAB
     Dosage: 2000 MG, QD, THERAPY DURATION: 5.0 MONTHS
  21. RITUXIMAB [Suspect]
     Active Substance: RITUXIMAB
     Dosage: UNK
  22. RITUXIMAB [Suspect]
     Active Substance: RITUXIMAB
     Dosage: UNK
  23. RITUXIMAB [Suspect]
     Active Substance: RITUXIMAB
     Dosage: UNK
  24. RITUXIMAB [Suspect]
     Active Substance: RITUXIMAB
     Dosage: UNK
  25. RITUXIMAB [Suspect]
     Active Substance: RITUXIMAB
     Dosage: UNK
  26. RITUXIMAB [Suspect]
     Active Substance: RITUXIMAB
     Dosage: UNK
  27. RITUXIMAB [Suspect]
     Active Substance: RITUXIMAB
     Dosage: UNK
     Route: 058
  28. RITUXIMAB [Suspect]
     Active Substance: RITUXIMAB
     Dosage: UNK
     Route: 058
  29. RITUXIMAB [Suspect]
     Active Substance: RITUXIMAB
     Dosage: 2000 MG
     Route: 058
  30. RITUXIMAB [Suspect]
     Active Substance: RITUXIMAB
     Dosage: 2 G, QD
  31. RITUXIMAB [Suspect]
     Active Substance: RITUXIMAB
     Dosage: 2 G, QD
  32. VOLTAREN [Suspect]
     Active Substance: DICLOFENAC SODIUM
     Indication: Product used for unknown indication
  33. VOLTAREN [Suspect]
     Active Substance: DICLOFENAC SODIUM
  34. VOLTAREN [Suspect]
     Active Substance: DICLOFENAC SODIUM
  35. VOLTAREN [Suspect]
     Active Substance: DICLOFENAC SODIUM
  36. VOLTAREN [Suspect]
     Active Substance: DICLOFENAC SODIUM
  37. SYNTHROID [Concomitant]
     Active Substance: LEVOTHYROXINE SODIUM
     Indication: Product used for unknown indication
     Dosage: 1 DOSAGE FORM, QD
  38. SYNTHROID [Concomitant]
     Active Substance: LEVOTHYROXINE SODIUM
     Dosage: 1 DOSAGE FORM, QD
  39. NEURONTIN [Concomitant]
     Active Substance: GABAPENTIN
     Indication: Product used for unknown indication
     Dosage: UNK
  40. EBASTINE [Concomitant]
     Active Substance: EBASTINE
     Indication: Product used for unknown indication
     Dosage: 4 DOSAGE FORM, QD
  41. CIPROFLOXACIN [Concomitant]
     Active Substance: CIPROFLOXACIN
     Indication: Product used for unknown indication
     Dosage: UNK
  42. CIPROFLOXACIN [Concomitant]
     Active Substance: CIPROFLOXACIN
     Dosage: UNK
  43. MONTELUKAST SODIUM [Concomitant]
     Active Substance: MONTELUKAST SODIUM
     Indication: Product used for unknown indication
     Dosage: 1 DOSAGE FORM, QD
  44. MONTELUKAST SODIUM [Concomitant]
     Active Substance: MONTELUKAST SODIUM
     Dosage: 1 DOSAGE FORM, QD
  45. CYCLOBENZAPRINE HYDROCHLORIDE [Concomitant]
     Active Substance: CYCLOBENZAPRINE HYDROCHLORIDE
     Indication: Product used for unknown indication
     Dosage: UNK

REACTIONS (56)
  - Wound infection [Fatal]
  - Pruritus [Fatal]
  - Somnolence [Fatal]
  - Abdominal distension [Fatal]
  - Neck pain [Fatal]
  - Hepatitis [Fatal]
  - Dyspepsia [Fatal]
  - Muscular weakness [Fatal]
  - Back injury [Fatal]
  - Nail disorder [Fatal]
  - Coeliac disease [Fatal]
  - Mobility decreased [Fatal]
  - Derealisation [Fatal]
  - Wheezing [Fatal]
  - Headache [Fatal]
  - Depressed mood [Fatal]
  - Peripheral coldness [Fatal]
  - Gait inability [Fatal]
  - Condition aggravated [Fatal]
  - Temperature intolerance [Fatal]
  - Diarrhoea [Fatal]
  - Decreased appetite [Fatal]
  - Urticaria [Fatal]
  - Product label confusion [Fatal]
  - Malaise [Fatal]
  - Insomnia [Fatal]
  - Respiratory tract congestion [Fatal]
  - Heart rate increased [Fatal]
  - Weight increased [Fatal]
  - Blister [Fatal]
  - Suicidal ideation [Fatal]
  - Burning sensation [Fatal]
  - Feeling abnormal [Fatal]
  - Asthenia [Fatal]
  - Weight decreased [Fatal]
  - Gastrooesophageal reflux disease [Fatal]
  - Intentional product use issue [Fatal]
  - Hypoaesthesia [Fatal]
  - Fatigue [Fatal]
  - Grip strength decreased [Fatal]
  - Alopecia [Fatal]
  - Sleep disorder [Fatal]
  - Bursitis [Fatal]
  - Musculoskeletal stiffness [Fatal]
  - Pain in extremity [Fatal]
  - Nausea [Fatal]
  - Erythema [Fatal]
  - Fall [Fatal]
  - Off label use [Fatal]
  - Folliculitis [Fatal]
  - Gastrointestinal disorder [Fatal]
  - Finger deformity [Fatal]
  - Liver function test increased [Fatal]
  - Osteoarthritis [Fatal]
  - Injury [Fatal]
  - Pneumonia [Fatal]
